FAERS Safety Report 12554182 (Version 1)
Quarter: 2016Q3

REPORT INFORMATION
  Report Type: Spontaneous
  Country: TR (occurrence: TR)
  Receive Date: 20160713
  Receipt Date: 20160713
  Transmission Date: 20161109
  Serious: Yes (Hospitalization)
  Sender: FDA-Public Use
  Company Number: TR-APOTEX-2016AP009586

PATIENT
  Age: 4 Year
  Sex: Male

DRUGS (2)
  1. RISPERIDONE. [Suspect]
     Active Substance: RISPERIDONE
     Dosage: 1 FULL TABLESPOON, SINGLE 15 CM3 PER 15 MG OF LIQUID
     Route: 048
  2. RISPERIDONE. [Suspect]
     Active Substance: RISPERIDONE
     Indication: OPPOSITIONAL DEFIANT DISORDER
     Dosage: 0.5 CM3/D FOR 45 DAYS
     Route: 048

REACTIONS (3)
  - Overdose [Recovered/Resolved]
  - Tachycardia [Recovering/Resolving]
  - Extrapyramidal disorder [Recovered/Resolved]
